FAERS Safety Report 8304345-4 (Version None)
Quarter: 2012Q2

REPORT INFORMATION
  Report Type: 
  Country: None (occurrence: None)
  Receive Date: 20120423
  Receipt Date: 20120418
  Transmission Date: 20120825
  Serious: Yes (Hospitalization, Other)
  Sender: FDA-Public Use
  Company Number: DK-PFIZER INC-2012096898

PATIENT
  Age: 16 Year
  Sex: Female
  Weight: 64 kg

DRUGS (7)
  1. ZIPRASIDONE HYDROCHLORIDE [Suspect]
     Dosage: 80 MG
     Dates: end: 20120323
  2. CLONIDINE [Concomitant]
     Indication: TOURETTE'S DISORDER
     Dosage: 25 UG
  3. ZYPREXA [Suspect]
     Indication: PSYCHOTIC DISORDER
     Dosage: 10 MG, AS NEEDED
     Route: 048
     Dates: start: 20120224, end: 20120323
  4. ZIPRASIDONE HYDROCHLORIDE [Suspect]
     Indication: PSYCHOTIC DISORDER
     Dosage: 40 MG, 2X/DAY
     Route: 048
     Dates: start: 20100101, end: 20120323
  5. ZIPRASIDONE HYDROCHLORIDE [Suspect]
     Dosage: 60 MG
  6. TOPAMAX [Concomitant]
     Indication: TOURETTE'S DISORDER
     Dosage: 50 MG
     Dates: start: 20070101, end: 20120323
  7. ORAP [Suspect]
     Indication: TOURETTE'S DISORDER
     Dosage: DOSE 2 MG, STRENGTH 1 MG
     Route: 048
     Dates: start: 20070101, end: 20120323

REACTIONS (6)
  - LEUKOCYTOSIS [None]
  - BLOOD CREATINE PHOSPHOKINASE INCREASED [None]
  - NEUROLEPTIC MALIGNANT SYNDROME [None]
  - STUPOR [None]
  - ASPARTATE AMINOTRANSFERASE INCREASED [None]
  - ACUTE PSYCHOSIS [None]
